FAERS Safety Report 17964900 (Version 1)
Quarter: 2020Q2

REPORT INFORMATION
  Report Type: Spontaneous
  Country: HR (occurrence: HR)
  Receive Date: 20200630
  Receipt Date: 20200630
  Transmission Date: 20200714
  Serious: Yes (Other)
  Sender: FDA-Public Use
  Company Number: HR-MYLANLABS-2020M1058908

PATIENT
  Age: 57 Year
  Sex: Female

DRUGS (17)
  1. RYDAPT [Suspect]
     Active Substance: MIDOSTAURIN
     Dosage: 100 MILLIGRAM, QD,(FROM DAY 8 TO DAY 21)
     Route: 048
     Dates: start: 20190827, end: 20190928
  2. CYTARABINE. [Suspect]
     Active Substance: CYTARABINE
     Dosage: UNK
     Route: 065
     Dates: start: 20190614, end: 20190715
  3. RYDAPT [Suspect]
     Active Substance: MIDOSTAURIN
     Indication: ACUTE MYELOID LEUKAEMIA
     Dosage: 100 MILLIGRAM, QD,(FROM DAY 8 TO DAY 21)
     Route: 048
     Dates: start: 201904
  4. LINEZOLID. [Suspect]
     Active Substance: LINEZOLID
     Indication: ACUTE MYELOID LEUKAEMIA
     Dosage: UNK
     Route: 065
  5. DAUNORUBICIN [Suspect]
     Active Substance: DAUNORUBICIN
     Dosage: UNK
     Route: 065
     Dates: start: 20190716, end: 20190826
  6. RYDAPT [Suspect]
     Active Substance: MIDOSTAURIN
     Dosage: 100 MILLIGRAM, QD,(FROM DAY 8 TO DAY 21)
     Route: 048
     Dates: start: 20190716, end: 20190826
  7. CYTARABINE. [Suspect]
     Active Substance: CYTARABINE
     Indication: ACUTE MYELOID LEUKAEMIA
     Dosage: UNK
     Route: 065
     Dates: start: 201904
  8. AZACITIDINE. [Suspect]
     Active Substance: AZACITIDINE
     Indication: ACUTE MYELOID LEUKAEMIA
     Dosage: 1.5 GRAM PER SQUARE METRE,(OVER 3 DAYS)
     Route: 065
     Dates: start: 20191020
  9. RYDAPT [Suspect]
     Active Substance: MIDOSTAURIN
     Dosage: 100 MILLIGRAM, QD,(FROM DAY 8 TO DAY 21)
     Route: 048
     Dates: start: 20190513, end: 20190613
  10. RYDAPT [Suspect]
     Active Substance: MIDOSTAURIN
     Dosage: 100 MILLIGRAM, QD,(FROM DAY 8 TO DAY 21)
     Route: 048
     Dates: start: 20190614, end: 20190715
  11. CYTARABINE. [Suspect]
     Active Substance: CYTARABINE
     Dosage: UNK
     Route: 065
     Dates: start: 20190716, end: 20190827
  12. CYTARABINE. [Suspect]
     Active Substance: CYTARABINE
     Dosage: UNK
     Route: 065
     Dates: start: 20190828, end: 20190928
  13. DAUNORUBICIN [Suspect]
     Active Substance: DAUNORUBICIN
     Dosage: UNK
     Route: 065
     Dates: start: 20190827, end: 20190928
  14. DAUNORUBICIN [Suspect]
     Active Substance: DAUNORUBICIN
     Dosage: UNK
     Route: 065
     Dates: start: 20190614, end: 20190715
  15. CYTARABINE. [Suspect]
     Active Substance: CYTARABINE
     Dosage: UNK
     Route: 065
     Dates: start: 20190513, end: 20190613
  16. DAUNORUBICIN [Suspect]
     Active Substance: DAUNORUBICIN
     Indication: ACUTE MYELOID LEUKAEMIA
     Dosage: UNK
     Route: 065
     Dates: start: 201904
  17. DAUNORUBICIN [Suspect]
     Active Substance: DAUNORUBICIN
     Dosage: UNK
     Route: 065
     Dates: start: 20190513, end: 20190613

REACTIONS (3)
  - Acute myeloid leukaemia recurrent [Unknown]
  - Chloroma [Unknown]
  - Rash [Unknown]

NARRATIVE: CASE EVENT DATE: 201904
